FAERS Safety Report 23677489 (Version 1)
Quarter: 2024Q1

REPORT INFORMATION
  Report Type: Spontaneous
  Country: KR (occurrence: KR)
  Receive Date: 20240327
  Receipt Date: 20240327
  Transmission Date: 20240410
  Serious: Yes (Other)
  Sender: FDA-Public Use
  Company Number: KR-BoehringerIngelheim-2024-BI-017796

PATIENT
  Age: 74 Year
  Sex: Female

DRUGS (2)
  1. EMPAGLIFLOZIN\METFORMIN HYDROCHLORIDE [Suspect]
     Active Substance: EMPAGLIFLOZIN\METFORMIN HYDROCHLORIDE
     Indication: Liver abscess
     Dosage: UNIT DOSE : 1 DOSAGE FORM?FORM STRENGTH : 5/500MG
     Route: 048
     Dates: start: 20230512, end: 20230611
  2. ATORVASTATIN CALCIUM TRIHYDRATE\EZETIMIBE [Suspect]
     Active Substance: ATORVASTATIN CALCIUM TRIHYDRATE\EZETIMIBE
     Indication: Liver abscess
     Dosage: UNIT DOSE : 1 DOSAGE FORM
     Route: 048
     Dates: start: 20230512, end: 20230611

REACTIONS (1)
  - Dermatitis bullous [Recovered/Resolved]

NARRATIVE: CASE EVENT DATE: 20230512
